FAERS Safety Report 10455860 (Version 1)
Quarter: 2014Q3

REPORT INFORMATION
  Report Type: Spontaneous
  Country: US (occurrence: None)
  Receive Date: 20140911
  Receipt Date: 20140911
  Transmission Date: 20150326
  Serious: Yes (Other)
  Sender: FDA-Public Use
  Company Number: ADR-2014-00723

PATIENT
  Age: 42 Year
  Sex: Female

DRUGS (4)
  1. MORPHINE (INTRATHECAL) [Suspect]
     Active Substance: MORPHINE
     Indication: PAIN
  2. FENTANYL INTRATHECAL [Suspect]
     Active Substance: FENTANYL
     Dosage: CONCENTRATION DOSE AND THERAPY UNKNOWN
  3. BUPIVACAINE INTRATHECAL [Suspect]
     Active Substance: BUPIVACAINE
     Dosage: CONCENTRATION, DOSE AND THERAPY UNKNOWN
  4. BACLOFEN INTRATHECAL [Suspect]
     Active Substance: BACLOFEN
     Indication: PAIN

REACTIONS (10)
  - Device dislocation [None]
  - Weight increased [None]
  - Peripheral swelling [None]
  - Tooth loss [None]
  - Device expulsion [None]
  - Generalised oedema [None]
  - Wound dehiscence [None]
  - Cerebrospinal fluid leakage [None]
  - Dental caries [None]
  - Device malfunction [None]
